FAERS Safety Report 6439280-X (Version None)
Quarter: 2009Q4

REPORT INFORMATION
  Report Type: 
  Country: None (occurrence: None)
  Receive Date: 20091113
  Receipt Date: 20091106
  Transmission Date: 20100525
  Serious: Yes (Hospitalization)
  Sender: FDA-Public Use
  Company Number: JP-BAYER-200911606BYL

PATIENT
  Age: 36 Year
  Sex: Female

DRUGS (2)
  1. FLUDARA [Suspect]
     Indication: STEM CELL TRANSPLANT
     Route: 041
     Dates: start: 20090117, end: 20090120
  2. CYCLOPHOSPHAMIDE [Concomitant]
     Indication: STEM CELL TRANSPLANT
     Route: 065
     Dates: start: 20090101

REACTIONS (3)
  - ENGRAFT FAILURE [None]
  - HERPES ZOSTER [None]
  - PANCYTOPENIA [None]
